FAERS Safety Report 13089227 (Version 1)
Quarter: 2017Q1

REPORT INFORMATION
  Report Type: Spontaneous
  Country: US (occurrence: US)
  Receive Date: 20170105
  Receipt Date: 20170105
  Transmission Date: 20170428
  Serious: No
  Sender: FDA-Public Use
  Company Number: US-BAYER-2017-002198

PATIENT
  Sex: Female

DRUGS (1)
  1. FINACEA [Suspect]
     Active Substance: AZELAIC ACID
     Indication: ROSACEA
     Dosage: 2 DF, QD

REACTIONS (3)
  - Therapeutic product ineffective [Recovering/Resolving]
  - Acne cystic [Recovering/Resolving]
  - Skin disorder [Recovering/Resolving]
